FAERS Safety Report 4395362-8 (Version None)
Quarter: 2004Q3

REPORT INFORMATION
  Report Type: 
  Country: None (occurrence: None)
  Receive Date: 20040712
  Receipt Date: 20040712
  Transmission Date: 20050211
  Serious: Yes (Hospitalization)
  Sender: FDA-Public Use
  Company Number: None

PATIENT
  Age: 17 Year
  Sex: Female
  Weight: 61.2356 kg

DRUGS (1)
  1. OMNICEF [Suspect]
     Indication: PHARYNGITIS
     Dosage: 300 MG BID PO
     Route: 048
     Dates: start: 20040614, end: 20040620

REACTIONS (1)
  - CLOSTRIDIUM COLITIS [None]
